FAERS Safety Report 5219757-5 (Version None)
Quarter: 2007Q1

REPORT INFORMATION
  Report Type: 
  Country: None (occurrence: None)
  Receive Date: 20061201
  Receipt Date: 20060703
  Transmission Date: 20070707
  Serious: No
  Sender: FDA-Public Use
  Company Number: 2006PV016895

PATIENT
  Age: 53 Year
  Sex: Female

DRUGS (4)
  1. BYETTA [Suspect]
     Indication: DIABETES MELLITUS NON-INSULIN-DEPENDENT
     Dosage: SEE IMAGE
     Route: 058
     Dates: start: 20060401, end: 20060501
  2. BYETTA [Suspect]
     Indication: DIABETES MELLITUS NON-INSULIN-DEPENDENT
     Dosage: SEE IMAGE
     Route: 058
     Dates: start: 20060501
  3. GLUCOTROL XL [Concomitant]
  4. AVANDIA [Concomitant]

REACTIONS (3)
  - ABDOMINAL DISTENSION [None]
  - BLOOD GLUCOSE INCREASED [None]
  - STOMACH DISCOMFORT [None]
